FAERS Safety Report 6182032-9 (Version None)
Quarter: 2009Q2

REPORT INFORMATION
  Report Type: 
  Country: None (occurrence: None)
  Receive Date: 20090506
  Receipt Date: 20090430
  Transmission Date: 20091009
  Serious: Yes (Other)
  Sender: FDA-Public Use
  Company Number: GB-GILEAD-2009-0021779

PATIENT
  Sex: Male

DRUGS (1)
  1. HEPSERA [Suspect]
     Indication: HEPATITIS B VIRUS TEST

REACTIONS (3)
  - COMA [None]
  - CORONARY ARTERY BYPASS [None]
  - VIRAL LOAD INCREASED [None]
